FAERS Safety Report 18653309 (Version 1)
Quarter: 2020Q4

REPORT INFORMATION
  Report Type: Spontaneous
  Country: US (occurrence: US)
  Receive Date: 20201223
  Receipt Date: 20201223
  Transmission Date: 20210114
  Serious: Yes (Other)
  Sender: FDA-Public Use
  Company Number: US-ROCHE-2726769

PATIENT
  Age: 27 Year
  Sex: Female

DRUGS (1)
  1. ALECENSA [Suspect]
     Active Substance: ALECTINIB HYDROCHLORIDE
     Indication: LUNG NEOPLASM MALIGNANT
     Dosage: ONGOING: YES
     Route: 048
     Dates: start: 20201112

REACTIONS (15)
  - Tremor [Unknown]
  - Pain in extremity [Unknown]
  - Product dose omission issue [Unknown]
  - Vomiting [Recovered/Resolved]
  - Insomnia [Unknown]
  - Anxiety [Recovering/Resolving]
  - Pain [Unknown]
  - Fatigue [Unknown]
  - Rhinorrhoea [Unknown]
  - Dry mouth [Unknown]
  - Nausea [Recovered/Resolved]
  - Illness [Unknown]
  - Nasal congestion [Unknown]
  - Haematemesis [Unknown]
  - Stomatitis [Unknown]

NARRATIVE: CASE EVENT DATE: 20201202
